FAERS Safety Report 10301031 (Version 1)
Quarter: 2014Q3

REPORT INFORMATION
  Report Type: Spontaneous
  Country: CN (occurrence: CN)
  Receive Date: 20140714
  Receipt Date: 20140714
  Transmission Date: 20150326
  Serious: Yes (Other)
  Sender: FDA-Public Use
  Company Number: CN-BAYER-2014-100613

PATIENT
  Age: 48 Year
  Sex: Female

DRUGS (2)
  1. PREDNISOLONE ACETATE. [Concomitant]
     Active Substance: PREDNISOLONE ACETATE
     Dosage: 60 MG, UNK
     Route: 048
  2. BETAFERON [Suspect]
     Active Substance: INTERFERON BETA-1B
     Indication: MULTIPLE SCLEROSIS
     Dosage: 0.25 ML, UNK
     Dates: start: 20140623, end: 20140626

REACTIONS (4)
  - Depressed level of consciousness [Recovering/Resolving]
  - Mobility decreased [Recovering/Resolving]
  - Vision blurred [Recovering/Resolving]
  - Asthenia [Recovering/Resolving]

NARRATIVE: CASE EVENT DATE: 20140624
